FAERS Safety Report 6786778-0 (Version None)
Quarter: 2010Q2

REPORT INFORMATION
  Report Type: 
  Country: None (occurrence: None)
  Receive Date: 20100623
  Receipt Date: 20100616
  Transmission Date: 20101027
  Serious: Yes (Death, Other)
  Sender: FDA-Public Use
  Company Number: PHHY2010US39193

PATIENT
  Age: 48 Year
  Sex: Female

DRUGS (5)
  1. PROLEUKIN [Suspect]
     Dosage: 3.5?10^5 IU Q12H
     Route: 058
  2. PROLEUKIN [Suspect]
     Dosage: 2.0?10^5 IU Q12H
     Route: 058
  3. PROLEUKIN [Suspect]
     Dosage: 3.5?10^5 IU Q12H
     Route: 058
  4. FOSCARNET [Concomitant]
  5. CIDOFOVIR [Concomitant]

REACTIONS (5)
  - DRUG INEFFECTIVE [None]
  - GENERALISED OEDEMA [None]
  - HAEMODYNAMIC INSTABILITY [None]
  - PYREXIA [None]
  - RENAL FAILURE [None]
